FAERS Safety Report 12657883 (Version 1)
Quarter: 2016Q3

REPORT INFORMATION
  Report Type: Spontaneous
  Country: US (occurrence: US)
  Receive Date: 20160816
  Receipt Date: 20160816
  Transmission Date: 20161109
  Serious: Yes (Other)
  Sender: FDA-Public Use
  Company Number: US-SA-2016SA144911

PATIENT
  Sex: Female

DRUGS (1)
  1. LEMTRADA [Suspect]
     Active Substance: ALEMTUZUMAB
     Dosage: RECEIVED THE INITIAL FIVE-DAY COURSE OF LEMTRADA APPROXIMATELY 1.5 YEARS AGO
     Route: 065

REACTIONS (2)
  - Thyroid cancer [Unknown]
  - Pregnancy [Recovered/Resolved]
